FAERS Safety Report 8239750-8 (Version None)
Quarter: 2012Q1

REPORT INFORMATION
  Report Type: 
  Country: None (occurrence: None)
  Receive Date: 20120328
  Receipt Date: 20120316
  Transmission Date: 20120608
  Serious: Yes (Other)
  Sender: FDA-Public Use
  Company Number: JP-UCBSA-053524

PATIENT
  Age: 53 Year
  Sex: Female

DRUGS (7)
  1. KEPPRA [Suspect]
     Dosage: 500MG
     Route: 048
     Dates: start: 20120301, end: 20120301
  2. TEGRETOL [Suspect]
     Route: 048
     Dates: start: 20120301
  3. ROCEPHIN [Concomitant]
     Route: 042
  4. ACTOS [Suspect]
     Dates: start: 20120301, end: 20120301
  5. LANSOPRAZOLE [Concomitant]
  6. GLUCONSAN K [Concomitant]
     Route: 048
  7. MIDAZOLAM HCL [Concomitant]
     Route: 042

REACTIONS (1)
  - HAEMATURIA [None]
